FAERS Safety Report 10592487 (Version 2)
Quarter: 2014Q4

REPORT INFORMATION
  Report Type: Spontaneous
  Country: JP (occurrence: JP)
  Receive Date: 20141119
  Receipt Date: 20141229
  Transmission Date: 20150529
  Serious: Yes (Hospitalization)
  Sender: FDA-Public Use
  Company Number: PHJP2014JP001318

PATIENT
  Age: 73 Year
  Sex: Male
  Weight: 67 kg

DRUGS (13)
  1. SEROQUEL [Suspect]
     Active Substance: QUETIAPINE FUMARATE
     Indication: SEDATION
     Dosage: 12.5 MG, QD
     Route: 048
     Dates: end: 20141103
  2. DEPAKENE [Concomitant]
     Active Substance: VALPROIC ACID
     Indication: PARKINSON^S DISEASE
     Dosage: UNK
     Route: 048
  3. RIVOTRIL [Suspect]
     Active Substance: CLONAZEPAM
     Indication: INSOMNIA
     Dosage: 10 MG (20 TABLETS), QD
     Route: 048
     Dates: start: 20141101
  4. RIVOTRIL [Suspect]
     Active Substance: CLONAZEPAM
     Dosage: UNK
     Route: 048
     Dates: end: 20141212
  5. MADOPAR [Concomitant]
     Active Substance: BENSERAZIDE HYDROCHLORIDE\LEVODOPA
     Indication: PARKINSON^S DISEASE
     Dosage: 200 MG, UNK
     Route: 048
  6. MAGMITT [Concomitant]
     Active Substance: MAGNESIUM OXIDE
     Indication: CONSTIPATION
     Dosage: 500 MG, TID
     Route: 048
  7. PURSENIDE [Concomitant]
     Active Substance: SENNOSIDES A AND B
     Indication: CONSTIPATION
     Dosage: 24 MG, QD
     Route: 048
  8. SENNA [Concomitant]
     Active Substance: SENNA LEAF\SENNOSIDES\SENNOSIDES A AND B
     Indication: CONSTIPATION
     Dosage: 0.5 G, QD
     Route: 048
  9. TEGRETOL [Suspect]
     Active Substance: CARBAMAZEPINE
     Dosage: 200 MG, QD (IN MORNING)
     Route: 048
     Dates: start: 20141203, end: 20141212
  10. NAUZELIN [Suspect]
     Active Substance: DOMPERIDONE
     Indication: VOMITING
     Dosage: 10 MG, BID
     Route: 048
  11. TEGRETOL [Suspect]
     Active Substance: CARBAMAZEPINE
     Indication: BIPOLAR DISORDER
     Dosage: 200 MG, BID (IN MORNING AND EVENING)
     Route: 048
     Dates: end: 20141126
  12. TEGRETOL [Suspect]
     Active Substance: CARBAMAZEPINE
     Dosage: 100 MG, BID
     Route: 048
     Dates: start: 20141127, end: 20141202
  13. PANTOSIN [Concomitant]
     Active Substance: PANTETHINE
     Indication: CONSTIPATION
     Dosage: 100 MG, BID
     Route: 048

REACTIONS (10)
  - Loss of consciousness [Recovered/Resolved]
  - Restlessness [Recovering/Resolving]
  - Asthenia [Recovering/Resolving]
  - Abnormal behaviour [Unknown]
  - Parkinson^s disease [Unknown]
  - Feeling abnormal [Recovering/Resolving]
  - Muscle tightness [Unknown]
  - Agitation [Unknown]
  - Tremor [Unknown]
  - Somnolence [Recovering/Resolving]

NARRATIVE: CASE EVENT DATE: 20141101
